FAERS Safety Report 6295300 (Version 15)
Quarter: 2013Q3

REPORT INFORMATION
  Report Type: Spontaneous
  Country: US (occurrence: US)
  Receive Date: 20070424
  Receipt Date: 20130724
  Transmission Date: 20140515
  Serious: Yes (Hospitalization, Other)
  Sender: FDA-Public Use
  Company Number: US-ROCHE-479476

PATIENT
  Age: 15 Year
  Sex: Male
  Weight: 56.7 kg

DRUGS (1)
  1. ACCUTANE [Suspect]
     Indication: ACNE CYSTIC
     Route: 048
     Dates: start: 19940719, end: 19950414

REACTIONS (18)
  - Crohn^s disease [Not Recovered/Not Resolved]
  - Depression [Recovering/Resolving]
  - Inflammatory bowel disease [Unknown]
  - Asthma [Recovering/Resolving]
  - Colitis [Unknown]
  - Intestinal obstruction [Unknown]
  - Colitis ulcerative [Unknown]
  - Fistula [Unknown]
  - Microcytic anaemia [Unknown]
  - Anxiety [Unknown]
  - Peptic ulcer [Unknown]
  - Rectal haemorrhage [Unknown]
  - Irritable bowel syndrome [Unknown]
  - Gastroenteritis [Unknown]
  - Lip dry [Unknown]
  - Eczema [Unknown]
  - Xerosis [Unknown]
  - Suicidal ideation [Unknown]
